FAERS Safety Report 10355574 (Version 2)
Quarter: 2014Q3

REPORT INFORMATION
  Report Type: Spontaneous
  Country: US (occurrence: None)
  Receive Date: 20140728
  Receipt Date: 20140807
  Transmission Date: 20150326
  Serious: Yes (Other)
  Sender: FDA-Public Use
  Company Number: UNT-2014-004405

PATIENT
  Age: 86 Year
  Sex: Female
  Weight: 67.6 kg

DRUGS (1)
  1. TYVASO [Suspect]
     Active Substance: TREPROSTINIL
     Indication: PULMONARY ARTERIAL HYPERTENSION
     Dosage: 18-54 MCG, QID, INHALATION?
     Route: 055
     Dates: start: 20140703

REACTIONS (3)
  - Eye pruritus [None]
  - Sneezing [None]
  - Productive cough [None]
